FAERS Safety Report 19278557 (Version 1)
Quarter: 2021Q2

REPORT INFORMATION
  Report Type: Spontaneous
  Country: AT (occurrence: AT)
  Receive Date: 20210520
  Receipt Date: 20210520
  Transmission Date: 20210717
  Serious: Yes (Hospitalization)
  Sender: FDA-Public Use
  Company Number: NVSC2021AT103926

PATIENT
  Age: 43 Year
  Sex: Female
  Weight: 76 kg

DRUGS (13)
  1. DOCETAXEL. [Suspect]
     Active Substance: DOCETAXEL
     Indication: BREAST CANCER
     Dosage: 75 MG/M2, TIW (MOST RECENT DOSE OF DOCETAXEL WAS RECEIVED ON 03/FEB/2017.)
     Route: 042
     Dates: start: 20160831, end: 20170203
  2. FULVESTRANT. [Suspect]
     Active Substance: FULVESTRANT
     Indication: BREAST CANCER
     Dosage: 500 MG, Q4W (MOST RECENT DOSE OF FULVERSTRANT WAS RECEIVED ON 26/SEP/2019)
     Route: 030
     Dates: start: 20190128
  3. ZOFRAN [Concomitant]
     Active Substance: ONDANSETRON HYDROCHLORIDE
     Indication: PRODUCT USED FOR UNKNOWN INDICATION
     Dosage: UNK
     Route: 065
  4. TAMOXIFEN [Suspect]
     Active Substance: TAMOXIFEN
     Indication: BREAST CANCER
     Dosage: 20 UG (ONCE DAILY)
     Route: 048
     Dates: start: 20160706
  5. PALBOCICLIB [Suspect]
     Active Substance: PALBOCICLIB
     Indication: BREAST CANCER
     Dosage: 100 MG, 28D (D1?21, Q28D, 6 CYCLED PER REGIMENMOST RECENT DOSE ON 29/SEP/2019)
     Route: 048
     Dates: start: 20190128
  6. GOSERELIN [Suspect]
     Active Substance: GOSERELIN
     Indication: BREAST CANCER
     Dosage: 3.6 MG/M2, Q4W
     Route: 058
     Dates: start: 20160706
  7. HYDAL [Concomitant]
     Active Substance: HYDROMORPHONE HYDROCHLORIDE
     Indication: PRODUCT USED FOR UNKNOWN INDICATION
     Dosage: UNK
     Route: 065
  8. FORTECORTIN [Concomitant]
     Active Substance: DEXAMETHASONE
     Indication: PRODUCT USED FOR UNKNOWN INDICATION
     Dosage: UNK
     Route: 065
  9. PANTOPRAZOLE [Concomitant]
     Active Substance: PANTOPRAZOLE
     Indication: PRODUCT USED FOR UNKNOWN INDICATION
     Dosage: UNK
     Route: 065
  10. ABEMACICLIB [Suspect]
     Active Substance: ABEMACICLIB
     Indication: BREAST CANCER
     Dosage: 150 MG
     Route: 048
  11. PERTUZUMAB. [Suspect]
     Active Substance: PERTUZUMAB
     Indication: BREAST CANCER
     Dosage: 420 MG, TIW (MOST RECENT DOSE OF PERTUZUMAB WAS RECEIVED ON 08/OCT/2018)
     Route: 042
     Dates: start: 20160805
  12. TRASTUZUMAB. [Suspect]
     Active Substance: TRASTUZUMAB
     Indication: BREAST CANCER
     Dosage: 6 MG/KG, TIW (MOST RECENT DOSE PRIOR TO THE EVENT: 27/SEP/2019)
     Route: 041
     Dates: start: 20160805, end: 20181008
  13. TRASTUZUMAB EMTANSINE [Suspect]
     Active Substance: ADO-TRASTUZUMAB EMTANSINE
     Indication: BREAST CANCER
     Dosage: 331 MG, TIW (MOST RECENT DOSE OF TRASTUZUMAB EMTANSINE WAS RECEIVED ON 07/JAN/2019)
     Route: 042
     Dates: start: 20181105

REACTIONS (2)
  - Acute kidney injury [Not Recovered/Not Resolved]
  - Urinary tract infection [Recovered/Resolved]

NARRATIVE: CASE EVENT DATE: 20200219
